FAERS Safety Report 17891109 (Version 3)
Quarter: 2020Q3

REPORT INFORMATION
  Report Type: Report from Study
  Country: FI (occurrence: FI)
  Receive Date: 20200612
  Receipt Date: 20200702
  Transmission Date: 20201103
  Serious: Yes (Other)
  Sender: FDA-Public Use
  Company Number: FI-EXELIXIS-XL18420030402

PATIENT
  Age: 80 Year
  Sex: Male
  Weight: 80.5 kg

DRUGS (9)
  1. LINATIL [Concomitant]
     Active Substance: ENALAPRIL MALEATE
  2. IZBA [Concomitant]
     Active Substance: TRAVOPROST
  3. XL184 [Suspect]
     Active Substance: CABOZANTINIB
     Dosage: 20 MG, QOD
     Route: 048
  4. XL184 [Suspect]
     Active Substance: CABOZANTINIB
     Indication: RENAL CELL CARCINOMA
     Dosage: 40 MG, QD
     Route: 048
     Dates: start: 20200303
  5. ALLONOL [Concomitant]
     Active Substance: ALLOPURINOL
  6. IPILIMUMAB [Suspect]
     Active Substance: IPILIMUMAB
     Indication: RENAL CELL CARCINOMA
     Dosage: 1 MG/KG, Q3WEEKS, 4 DOSES
     Route: 042
     Dates: start: 20200303
  7. NIVOLUMAB [Suspect]
     Active Substance: NIVOLUMAB
     Indication: RENAL CELL CARCINOMA
     Dosage: 3 MG/KG, Q3WEEKS, 4 DOSES
     Route: 042
     Dates: start: 20200303
  8. ARIXTRA [Concomitant]
     Active Substance: FONDAPARINUX SODIUM
  9. AZOPT [Concomitant]
     Active Substance: BRINZOLAMIDE

REACTIONS (2)
  - Conjunctivitis [Recovering/Resolving]
  - Orbital myositis [Recovering/Resolving]

NARRATIVE: CASE EVENT DATE: 20200513
